FAERS Safety Report 5570245-6 (Version None)
Quarter: 2007Q4

REPORT INFORMATION
  Report Type: 
  Country: None (occurrence: None)
  Receive Date: 20071220
  Receipt Date: 20071213
  Transmission Date: 20080405
  Serious: Yes (Other)
  Sender: FDA-Public Use
  Company Number: US-PFIZER INC-2007104786

PATIENT
  Age: 11 Year
  Sex: Male
  Weight: 35 kg

DRUGS (3)
  1. CLEOCIN PEDIATRIC FLAVORED [Suspect]
     Indication: APPENDICECTOMY
     Route: 048
     Dates: start: 20071202, end: 20071209
  2. CLINDAMYCIN HCL [Suspect]
     Indication: APPENDICECTOMY
     Route: 048
     Dates: start: 20071202, end: 20071209
  3. PREDNISONE [Suspect]
     Indication: RASH

REACTIONS (2)
  - PYREXIA [None]
  - RASH GENERALISED [None]
